FAERS Safety Report 20049475 (Version 1)
Quarter: 2021Q4

REPORT INFORMATION
  Report Type: Spontaneous
  Country: US (occurrence: US)
  Receive Date: 20211109
  Receipt Date: 20211109
  Transmission Date: 20220303
  Serious: No
  Sender: FDA-Public Use
  Company Number: US-VERTEX PHARMACEUTICALS-2021-017098

PATIENT
  Age: 6 Year
  Sex: Female

DRUGS (2)
  1. TRIKAFTA [Suspect]
     Active Substance: ELEXACAFTOR\IVACAFTOR\TEZACAFTOR
     Indication: Cystic fibrosis
     Dosage: IVACAFTOR DOSE ON THE EVENING AND THE ELEXACAFTOR/TEZACAFTOR/IVACAFTOR DOSE ON THE MORNING
     Route: 048
     Dates: start: 202108, end: 2021
  2. TRIKAFTA [Suspect]
     Active Substance: ELEXACAFTOR\IVACAFTOR\TEZACAFTOR
     Dosage: IVACAFTOR DOSE ON THE MORNING AND THE ELEXACAFTOR/TEZACAFTOR/IVACAFTOR DOSE ON THE EVENING
     Route: 048
     Dates: start: 2021

REACTIONS (6)
  - Abdominal pain upper [Recovering/Resolving]
  - Behaviour disorder [Recovering/Resolving]
  - Mucous stools [Not Recovered/Not Resolved]
  - Middle insomnia [Not Recovered/Not Resolved]
  - Nausea [Not Recovered/Not Resolved]
  - Constipation [Not Recovered/Not Resolved]

NARRATIVE: CASE EVENT DATE: 20210101
